FAERS Safety Report 21861894 (Version 1)
Quarter: 2023Q1

REPORT INFORMATION
  Report Type: Spontaneous
  Country: US (occurrence: US)
  Receive Date: 20230113
  Receipt Date: 20230113
  Transmission Date: 20230418
  Serious: No
  Sender: FDA-Public Use
  Company Number: US-JNJFOC-20230102921

PATIENT
  Age: 45 Year
  Sex: Female

DRUGS (1)
  1. RYBREVANT [Suspect]
     Active Substance: AMIVANTAMAB-VMJW
     Indication: Small cell lung cancer
     Route: 042
     Dates: start: 20221128

REACTIONS (2)
  - Product dose omission issue [Unknown]
  - Vascular rupture [Unknown]

NARRATIVE: CASE EVENT DATE: 20221227
